FAERS Safety Report 21959357 (Version 1)
Quarter: 2023Q1

REPORT INFORMATION
  Report Type: Spontaneous
  Country: BG (occurrence: BG)
  Receive Date: 20230206
  Receipt Date: 20230206
  Transmission Date: 20230418
  Serious: Yes (Death, Other)
  Sender: FDA-Public Use
  Company Number: BG-ASTELLAS-2023US000632

PATIENT
  Age: 30 Year
  Sex: Female

DRUGS (4)
  1. AZACITIDINE [Suspect]
     Active Substance: AZACITIDINE
     Indication: Product used for unknown indication
     Dosage: 100 MILLIGRAM/SQ. METER, UNKNOWN FREQ. (5 DAYS)
     Route: 065
  2. GILTERITINIB [Suspect]
     Active Substance: GILTERITINIB
     Indication: Product used for unknown indication
     Dosage: 120 MILLIGRAM, QD (ONCE DAILY)
     Route: 065
  3. GILTERITINIB [Suspect]
     Active Substance: GILTERITINIB
     Dosage: 120 MILLIGRAM, QD (ONCE DAILY, FOR 4 CYCLES)
     Route: 065
  4. VENETOCLAX [Suspect]
     Active Substance: VENETOCLAX
     Indication: Product used for unknown indication
     Dosage: 400 MILLIGRAM, QD
     Route: 065

REACTIONS (5)
  - Septic shock [Fatal]
  - Pneumonia cytomegaloviral [Fatal]
  - Acute myeloid leukaemia recurrent [Unknown]
  - Product use issue [Unknown]
  - Off label use [Unknown]
